FAERS Safety Report 9528574 (Version 3)
Quarter: 2013Q4

REPORT INFORMATION
  Report Type: Report from Study
  Country: CA (occurrence: CA)
  Receive Date: 20130917
  Receipt Date: 20131110
  Transmission Date: 20140711
  Serious: Yes (Death, Hospitalization, Other)
  Sender: FDA-Public Use
  Company Number: CA-ROCHE-1274197

PATIENT
  Age: 67 Year
  Sex: Female
  Weight: 64 kg

DRUGS (15)
  1. ACTEMRA [Suspect]
     Indication: RHEUMATOID ARTHRITIS
     Route: 042
  2. ACTEMRA [Suspect]
     Route: 042
     Dates: start: 20101221
  3. ACTEMRA [Suspect]
     Route: 042
     Dates: start: 20130417
  4. METHOTREXATE [Concomitant]
  5. NOVO-DIFENAC [Concomitant]
  6. FOLIC ACID [Concomitant]
  7. PARIET [Concomitant]
  8. ELTROXIN [Concomitant]
  9. CRESTOR [Concomitant]
  10. TRAMADOL [Concomitant]
  11. RABEPRAZOLE [Concomitant]
  12. TRIAZIDE [Concomitant]
  13. IMOVANE [Concomitant]
  14. REACTINE (CANADA) [Concomitant]
  15. OMEGA 3 [Concomitant]

REACTIONS (5)
  - Death [Fatal]
  - Renal function test abnormal [Unknown]
  - Herpes simplex encephalitis [Unknown]
  - Convulsion [Unknown]
  - Sinusitis [Unknown]
